FAERS Safety Report 4433016-X (Version None)
Quarter: 2004Q3

REPORT INFORMATION
  Report Type: 
  Country: None (occurrence: None)
  Receive Date: 20040721
  Receipt Date: 20040218
  Transmission Date: 20050211
  Serious: Yes (Other)
  Sender: FDA-Public Use
  Company Number: OSCN-PR-0402L-0024(0)

PATIENT
  Age: 5 Week
  Sex: Female

DRUGS (3)
  1. OMNISCAN [Suspect]
     Indication: DRUG USE FOR UNKNOWN INDICATION
     Dosage: 4.5 ML, SINGLE DOSE, I.A.
     Route: 013
  2. OMNIPAQUE 180 [Suspect]
     Indication: DRUG USE FOR UNKNOWN INDICATION
     Dosage: SINGLE DOSE, I.A.
     Route: 013
  3. UNSPECIFIED ANTI-EPILEPTIC DRUG [Concomitant]

REACTIONS (1)
  - CONVULSION [None]
